FAERS Safety Report 6719014-1 (Version None)
Quarter: 2010Q2

REPORT INFORMATION
  Report Type: 
  Country: None (occurrence: None)
  Receive Date: 20100511
  Receipt Date: 20100116
  Transmission Date: 20101027
  Serious: Yes (Other)
  Sender: FDA-Public Use
  Company Number: IT-BAYER-201024034GPV

PATIENT
  Age: 87 Year
  Sex: Female

DRUGS (7)
  1. ALEMTUZUMAB [Suspect]
     Indication: APLASIA PURE RED CELL
     Dosage: ESCALATING DOSE (3-10-30-30 MG)
     Route: 058
  2. CYCLOSPORINE [Suspect]
     Indication: APLASIA PURE RED CELL
     Dosage: 1 MG/KG FROM DAY 7, THEN ADJUSTED TO BLOOD LEVEL (TARGETING 100-20 NG/ML USING A MONOCLONAL ASSAY)
     Route: 048
  3. STEROIDS [Concomitant]
     Indication: PREMEDICATION
     Route: 042
  4. ANTIHISTAMINES [Concomitant]
     Indication: PREMEDICATION
  5. PARACETAMOL [Concomitant]
     Indication: PREMEDICATION
     Route: 048
  6. VALGANCICLOVIR HCL [Concomitant]
     Indication: ANTIVIRAL PROPHYLAXIS
  7. TRIMETHOPRIM + SULFAMETHOXAZOLE [Concomitant]
     Indication: ANTIFUNGAL PROPHYLAXIS

REACTIONS (2)
  - HEPATIC ENZYME INCREASED [None]
  - NEUROPATHY PERIPHERAL [None]
